FAERS Safety Report 6055686-5 (Version None)
Quarter: 2009Q1

REPORT INFORMATION
  Report Type: 
  Country: None (occurrence: None)
  Receive Date: 20090128
  Receipt Date: 20090116
  Transmission Date: 20090719
  Serious: Yes (Death, Hospitalization)
  Sender: FDA-Public Use
  Company Number: PL-WYE-H07737409

PATIENT
  Age: 21 Year
  Sex: Female

DRUGS (4)
  1. VENLAFAXINE HCL [Interacting]
     Indication: DEPRESSION
     Dosage: 12 TABLETS OF 150 MG EACH (1800 MG) (OVERDOSE AMOUNT)
     Route: 048
  2. COCAINE [Suspect]
     Dosage: CONSTANTLY TAKING
  3. COCAINE [Suspect]
     Dosage: STARTED DRAMATICALLY RESTRICTING COCAINE USE
  4. MOCLOXIL [Interacting]
     Indication: DEPRESSION
     Dosage: 12 TABLETS OF 150 MG EACH (1800 MG) (OVERDOSE AMOUNT)
     Route: 048

REACTIONS (10)
  - BLOODY AIRWAY DISCHARGE [None]
  - COLD SWEAT [None]
  - COMA [None]
  - DRUG INTERACTION [None]
  - FEELING ABNORMAL [None]
  - HAEMATOCHEZIA [None]
  - INTENTIONAL OVERDOSE [None]
  - SCREAMING [None]
  - SEROTONIN SYNDROME [None]
  - VENTRICULAR FIBRILLATION [None]
